FAERS Safety Report 15851660 (Version 2)
Quarter: 2020Q1

REPORT INFORMATION
  Report Type: Spontaneous
  Country: GB (occurrence: GB)
  Receive Date: 20190122
  Receipt Date: 20200127
  Transmission Date: 20200409
  Serious: Yes (Other)
  Sender: FDA-Public Use
  Company Number: GB-ACCORD-102932

PATIENT
  Age: 17 Year
  Sex: Female
  Weight: 50 kg

DRUGS (2)
  1. SERTRALINE [Suspect]
     Active Substance: SERTRALINE HYDROCHLORIDE
     Indication: DEPRESSION
     Route: 048
     Dates: start: 20170712, end: 20170818
  2. SERTRALINE [Suspect]
     Active Substance: SERTRALINE HYDROCHLORIDE
     Indication: DEPRESSION
     Route: 048
     Dates: start: 20170512, end: 20170711

REACTIONS (11)
  - Dry mouth [Unknown]
  - Hypopituitarism [Unknown]
  - Visual field defect [Not Recovered/Not Resolved]
  - Fatigue [Unknown]
  - Cycloplegia [Unknown]
  - Headache [Unknown]
  - Confusional state [Unknown]
  - Alopecia [Unknown]
  - Yawning [Unknown]
  - Cortisol decreased [Unknown]
  - Tunnel vision [Not Recovered/Not Resolved]

NARRATIVE: CASE EVENT DATE: 20170815
